FAERS Safety Report 20892702 (Version 1)
Quarter: 2022Q2

REPORT INFORMATION
  Report Type: Spontaneous
  Country: NL (occurrence: NL)
  Receive Date: 20220531
  Receipt Date: 20220531
  Transmission Date: 20220721
  Serious: Yes (Hospitalization)
  Sender: FDA-Public Use
  Company Number: NL-LRB-00808816

PATIENT
  Age: 70 Year
  Sex: Male
  Weight: 102 kg

DRUGS (2)
  1. ESOMEPRAZOLE [Suspect]
     Active Substance: ESOMEPRAZOLE
     Indication: Product used for unknown indication
     Dosage: GASTRO-RESISTANT CAPSULE, 20 MG (MILLIGRAMS), ()
     Route: 065
     Dates: start: 2012, end: 20220510
  2. NsaidNsaid [Concomitant]
     Indication: Product used for unknown indication
     Dosage: DICLOFENAC 50MG, IBUPROFEN 400MG (EXCEEDED BOTH DAILY DOSES) ()
     Route: 065

REACTIONS (1)
  - Hypomagnesaemia [Recovering/Resolving]

NARRATIVE: CASE EVENT DATE: 20220510
